FAERS Safety Report 4901392-7 (Version None)
Quarter: 2006Q1

REPORT INFORMATION
  Report Type: 
  Country: None (occurrence: None)
  Receive Date: 20060206
  Receipt Date: 20051018
  Transmission Date: 20060701
  Serious: Yes (Death, Life-Threatening, Hospitalization, Other)
  Sender: FDA-Public Use
  Company Number: 200518096US

PATIENT
  Sex: Female
  Weight: 73 kg

DRUGS (21)
  1. TAXOTERE [Suspect]
     Indication: BREAST CANCER
     Dates: start: 20051001, end: 20051001
  2. NEURONTIN [Concomitant]
     Route: 048
     Dates: end: 20051014
  3. NEULASTA [Concomitant]
     Dosage: DOSE: UNKNOWN
  4. TOBRAMYCIN [Concomitant]
     Dosage: DOSE: UNKNOWN
     Dates: end: 20051001
  5. CEFEPIME [Concomitant]
     Dosage: DOSE: UNKNOWN
     Dates: end: 20051001
  6. VANCOMYCIN [Concomitant]
     Dosage: DOSE: UNKNOWN
     Dates: end: 20051001
  7. MELOXICAM [Concomitant]
     Dosage: DOSE: UNKNOWN
     Dates: end: 20051014
  8. PROTONIX [Concomitant]
     Dosage: DOSE: UNKNOWN
     Dates: end: 20051001
  9. ZOFRAN [Concomitant]
     Dosage: DOSE: UNKNOWN
     Dates: end: 20051001
  10. SENOKOT [Concomitant]
     Dosage: DOSE: UNKNOWN
     Dates: end: 20051001
  11. ENOXAPARIN SODIUM [Concomitant]
     Indication: THROMBOSIS PROPHYLAXIS
     Dosage: DOSE: UNKNOWN
     Dates: end: 20051001
  12. DEXAMETHASONE TAB [Concomitant]
     Dosage: DOSE: UNKNOWN
     Dates: end: 20051001
  13. DIFLUCAN [Concomitant]
     Dosage: DOSE: UNKNOWN
  14. ADVIL [Concomitant]
     Dosage: DOSE: UNKNOWN
  15. ADRIAMYCIN PFS [Concomitant]
     Indication: BREAST CANCER
     Dosage: DOSE: UNKNOWN
     Dates: end: 20050901
  16. DEMEROL [Concomitant]
     Indication: PAIN
     Dosage: DOSE: UNKNOWN
  17. CYTOXAN [Concomitant]
     Indication: BREAST CANCER
     Dosage: DOSE: UNKNOWN
     Dates: end: 20050901
  18. NUBAIN [Concomitant]
     Indication: PAIN
     Dosage: DOSE: UNK
     Dates: start: 20051015
  19. VICODIN [Concomitant]
     Indication: PAIN
  20. MICRO-K [Concomitant]
     Route: 048
     Dates: end: 20051014
  21. LIDOCAINE [Concomitant]
     Indication: PAIN
     Dosage: DOSE: UNK

REACTIONS (25)
  - ADVERSE DRUG REACTION [None]
  - AKINESIA [None]
  - ASTHENIA [None]
  - BLOOD GLUCOSE INCREASED [None]
  - BONE MARROW FAILURE [None]
  - CARDIAC ARREST [None]
  - CARDIAC FAILURE CONGESTIVE [None]
  - CARDIOMEGALY [None]
  - DIARRHOEA [None]
  - DRUG LEVEL INCREASED [None]
  - ENCEPHALOPATHY [None]
  - HYPONATRAEMIA [None]
  - INCONTINENCE [None]
  - MALNUTRITION [None]
  - MENTAL IMPAIRMENT [None]
  - METABOLIC ACIDOSIS [None]
  - MUCOSAL INFLAMMATION [None]
  - MULTI-ORGAN FAILURE [None]
  - OEDEMA [None]
  - PERIPHERAL MOTOR NEUROPATHY [None]
  - RENAL FAILURE ACUTE [None]
  - SKIN DISORDER [None]
  - SPEECH DISORDER [None]
  - STOMATITIS [None]
  - WHITE BLOOD CELL COUNT INCREASED [None]
